APPROVED DRUG PRODUCT: CIMETIDINE
Active Ingredient: CIMETIDINE
Strength: 800MG
Dosage Form/Route: TABLET;ORAL
Application: A074365 | Product #004
Applicant: TEVA PHARMACEUTICALS USA INC
Approved: Feb 28, 1995 | RLD: No | RS: No | Type: DISCN